FAERS Safety Report 5192015-3 (Version None)
Quarter: 2006Q4

REPORT INFORMATION
  Report Type: 
  Country: None (occurrence: None)
  Receive Date: 20061220
  Receipt Date: 20061208
  Transmission Date: 20070319
  Serious: Yes (Other)
  Sender: FDA-Public Use
  Company Number: 15337

PATIENT
  Age: 44 Year
  Sex: Female

DRUGS (7)
  1. DEXAMETHASONE [Suspect]
     Indication: MULTIPLE MYELOMA
  2. PAMIDRONATE DISODIUM [Suspect]
     Indication: OSTEOLYSIS
     Dosage: 90 MG MONTHLY IV
     Route: 042
  3. VINCRISTINE [Suspect]
     Indication: MULTIPLE MYELOMA
  4. MELPHALAN [Suspect]
     Indication: MULTIPLE MYELOMA
     Dosage: 200 MG/M2 MONTHLY IV
     Route: 042
  5. ZOLEDRONATE [Suspect]
     Indication: OSTEOLYSIS
     Dosage: 4 MG MONTHLY IV
     Route: 042
  6. ADRIAMYCIN PFS [Suspect]
     Indication: MULTIPLE MYELOMA
  7. THALIDOMIDE [Suspect]
     Indication: MULTIPLE MYELOMA

REACTIONS (4)
  - HYPOAESTHESIA [None]
  - IMPAIRED HEALING [None]
  - OSTEONECROSIS [None]
  - PAIN [None]
